FAERS Safety Report 23920243 (Version 2)
Quarter: 2024Q2

REPORT INFORMATION
  Report Type: Spontaneous
  Country: US (occurrence: US)
  Receive Date: 20240530
  Receipt Date: 20240604
  Transmission Date: 20240715
  Serious: Yes (Other)
  Sender: FDA-Public Use
  Company Number: US-PFIZER INC-202400180523

PATIENT
  Age: 56 Year
  Sex: Female

DRUGS (2)
  1. IBRANCE [Suspect]
     Active Substance: PALBOCICLIB
     Dosage: UNK
     Dates: start: 202211, end: 202310
  2. IBRANCE [Suspect]
     Active Substance: PALBOCICLIB
     Dosage: 125MG ORALLY PER DAY FOR 21 DAYS OF 28 DAY CYCLE
     Route: 048
     Dates: start: 202401

REACTIONS (3)
  - Breast conserving surgery [Unknown]
  - Hot flush [Not Recovered/Not Resolved]
  - Urticaria [Not Recovered/Not Resolved]

NARRATIVE: CASE EVENT DATE: 20231001
